FAERS Safety Report 19285849 (Version 3)
Quarter: 2022Q3

REPORT INFORMATION
  Report Type: Report from Study
  Country: JP (occurrence: JP)
  Receive Date: 20210521
  Receipt Date: 20220808
  Transmission Date: 20221027
  Serious: Yes (Hospitalization, Other)
  Sender: FDA-Public Use
  Company Number: JP-ONO-2020JP008348

PATIENT
  Age: 81 Year
  Sex: Male
  Weight: 54.5 kg

DRUGS (28)
  1. ETELCALCETIDE [Suspect]
     Active Substance: ETELCALCETIDE
     Indication: Hyperparathyroidism secondary
     Dosage: 2.5 MILLIGRAM, Q56H
     Route: 010
     Dates: start: 20191130, end: 20191226
  2. ETELCALCETIDE [Suspect]
     Active Substance: ETELCALCETIDE
     Dosage: 5 MILLIGRAM, Q56H
     Route: 010
     Dates: start: 20191228, end: 20200326
  3. ETELCALCETIDE [Suspect]
     Active Substance: ETELCALCETIDE
     Dosage: 7.5 MILLIGRAM, Q56H
     Route: 010
     Dates: start: 20200328
  4. ALFACALCIDOL [Concomitant]
     Active Substance: ALFACALCIDOL
     Dosage: 0.25 MICROGRAM, QD
     Route: 048
     Dates: end: 20200513
  5. ALFACALCIDOL [Concomitant]
     Active Substance: ALFACALCIDOL
     Dosage: 0.5 MICROGRAM, QD
     Route: 048
     Dates: start: 20200514, end: 20201223
  6. ERYTHROPOIETIN [Concomitant]
     Active Substance: ERYTHROPOIETIN
     Dosage: 2250 INTERNATIONAL UNIT, QWK
     Route: 065
     Dates: end: 20191112
  7. ERYTHROPOIETIN [Concomitant]
     Active Substance: ERYTHROPOIETIN
     Dosage: 750 INTERNATIONAL UNIT, QWK
     Route: 065
     Dates: start: 20191114, end: 20200421
  8. ERYTHROPOIETIN [Concomitant]
     Active Substance: ERYTHROPOIETIN
     Dosage: 1500 INTERNATIONAL UNIT, QWK
     Route: 065
     Dates: start: 20200423, end: 20200525
  9. ERYTHROPOIETIN [Concomitant]
     Active Substance: ERYTHROPOIETIN
     Dosage: 3000 INTERNATIONAL UNIT, QWK
     Route: 065
     Dates: start: 20200527, end: 20200706
  10. ERYTHROPOIETIN [Concomitant]
     Active Substance: ERYTHROPOIETIN
     Dosage: 2250 INTERNATIONAL UNIT, QWK
     Route: 065
     Dates: start: 20200708, end: 20200803
  11. ERYTHROPOIETIN [Concomitant]
     Active Substance: ERYTHROPOIETIN
     Dosage: 1500 INTERNATIONAL UNIT, QWK
     Route: 065
     Dates: start: 20200805, end: 20201207
  12. ERYTHROPOIETIN [Concomitant]
     Active Substance: ERYTHROPOIETIN
     Dosage: 3000 INTERNATIONAL UNIT, QWK
     Route: 065
     Dates: start: 20201209, end: 20210202
  13. ERYTHROPOIETIN [Concomitant]
     Active Substance: ERYTHROPOIETIN
     Dosage: 2250 INTERNATIONAL UNIT, QWK
     Route: 065
     Dates: start: 20210204, end: 20210413
  14. ERYTHROPOIETIN [Concomitant]
     Active Substance: ERYTHROPOIETIN
     Dosage: 750 INTERNATIONAL UNIT, QWK
     Route: 065
     Dates: start: 20210415, end: 20210512
  15. FOSRENOL [Concomitant]
     Active Substance: LANTHANUM CARBONATE
     Dosage: 500 MILLIGRAM, QD
     Route: 048
     Dates: start: 20191114, end: 20200205
  16. FOSRENOL [Concomitant]
     Active Substance: LANTHANUM CARBONATE
     Dosage: 500 MILLIGRAM, QD
     Route: 048
     Dates: start: 20210218
  17. LANTHANUM CARBONATE [Concomitant]
     Active Substance: LANTHANUM CARBONATE
     Dosage: 500 MILLIGRAM, QD
     Route: 048
     Dates: start: 20201028, end: 20201125
  18. Fesin [Concomitant]
     Dosage: 80 MILLIGRAM, QWK
     Route: 042
     Dates: start: 20200125, end: 20200204
  19. Fesin [Concomitant]
     Dosage: 80 MILLIGRAM, QWK
     Route: 042
     Dates: start: 20200425, end: 20200605
  20. Fesin [Concomitant]
     Dosage: 80 MILLIGRAM, QWK
     Route: 042
     Dates: start: 20200626, end: 20200706
  21. Fesin [Concomitant]
     Dosage: 80 MILLIGRAM, QWK
     Route: 042
     Dates: start: 20201002, end: 20201012
  22. Fesin [Concomitant]
     Dosage: 80 MILLIGRAM, QWK
     Route: 042
     Dates: start: 20210109, end: 20210119
  23. Fesin [Concomitant]
     Dosage: 80 MILLIGRAM, QWK
     Route: 042
     Dates: start: 20210206, end: 20210216
  24. Fesin [Concomitant]
     Dosage: 80 MILLIGRAM, QWK
     Route: 042
     Dates: start: 20210417, end: 20210427
  25. Fesin [Concomitant]
     Dosage: 80 MILLIGRAM, QWK
     Route: 042
     Dates: start: 20210611, end: 20210621
  26. Fesin [Concomitant]
     Dosage: 80 MILLIGRAM, QWK
     Route: 042
     Dates: start: 20220211, end: 20220221
  27. Fesin [Concomitant]
     Dosage: 80 MILLIGRAM, QWK
     Route: 042
     Dates: start: 20220429, end: 20220510
  28. Fesin [Concomitant]
     Dosage: 80 MILLIGRAM, QWK
     Route: 042
     Dates: start: 20220624

REACTIONS (11)
  - Spinal compression fracture [Recovered/Resolved]
  - Colitis ischaemic [Recovered/Resolved]
  - Fall [Unknown]
  - Nasopharyngitis [Recovered/Resolved]
  - Nasopharyngitis [Recovered/Resolved]
  - Nasopharyngitis [Recovered/Resolved]
  - Nasopharyngitis [Recovered/Resolved]
  - Nasopharyngitis [Recovered/Resolved]
  - Vertigo [Recovered/Resolved]
  - Nasopharyngitis [Recovered/Resolved]
  - Nasopharyngitis [Recovered/Resolved]

NARRATIVE: CASE EVENT DATE: 20200125
